FAERS Safety Report 20650370 (Version 1)
Quarter: 2022Q1

REPORT INFORMATION
  Report Type: Spontaneous
  Country: US (occurrence: None)
  Receive Date: 20220329
  Receipt Date: 20220329
  Transmission Date: 20220423
  Serious: Yes (Disabling)
  Sender: FDA-Public Use
  Company Number: None

PATIENT
  Age: 63 Year
  Sex: Female
  Weight: 92.25 kg

DRUGS (2)
  1. OZEMPIC [Suspect]
     Active Substance: SEMAGLUTIDE
     Indication: Weight decreased
     Dosage: OTHER QUANTITY : 1 INJECTION(S);?OTHER FREQUENCY : 1 PER WEEK;?OTHER ROUTE : SUBCUTANEOUS INJECTION;
     Route: 050
     Dates: start: 20210525
  2. OZEMPIC [Suspect]
     Active Substance: SEMAGLUTIDE
     Indication: Blood glucose fluctuation

REACTIONS (3)
  - Feeling cold [None]
  - Thyroxine free increased [None]
  - Tri-iodothyronine decreased [None]

NARRATIVE: CASE EVENT DATE: 20210531
